FAERS Safety Report 24539227 (Version 1)
Quarter: 2024Q4

REPORT INFORMATION
  Report Type: Spontaneous
  Country: DE (occurrence: DE)
  Receive Date: 20241023
  Receipt Date: 20241023
  Transmission Date: 20250115
  Serious: Yes (Death, Other)
  Sender: RANBAXY
  Company Number: DE-SUN PHARMACEUTICAL INDUSTRIES LTD-2024R1-474570

PATIENT
  Age: 36 Year
  Sex: Female

DRUGS (1)
  1. NIMODIPINE [Suspect]
     Active Substance: NIMODIPINE
     Indication: Muscle spasms
     Dosage: UNK
     Route: 065

REACTIONS (4)
  - Cerebral infarction [Fatal]
  - Cardiopulmonary failure [Unknown]
  - Exposure during pregnancy [Unknown]
  - Hypertension [Unknown]
